FAERS Safety Report 5014648-7 (Version None)
Quarter: 2006Q2

REPORT INFORMATION
  Report Type: 
  Country: None (occurrence: None)
  Receive Date: 20060531
  Receipt Date: 20060404
  Transmission Date: 20061013
  Serious: Yes (Other)
  Sender: FDA-Public Use
  Company Number: FR-BRISTOL-MYERS SQUIBB COMPANY-13337845

PATIENT
  Age: 58 Year
  Sex: Male
  Weight: 66 kg

DRUGS (4)
  1. REYATAZ [Suspect]
     Indication: HIV INFECTION
     Route: 048
     Dates: start: 20040324
  2. VIDEX [Concomitant]
     Dates: start: 20040324
  3. NORVIR [Concomitant]
     Dates: start: 20040324
  4. RETROVIR [Concomitant]
     Dates: start: 20010101

REACTIONS (1)
  - RENAL FAILURE ACUTE [None]
